FAERS Safety Report 13843338 (Version 3)
Quarter: 2017Q3

REPORT INFORMATION
  Report Type: Spontaneous
  Country: US (occurrence: US)
  Receive Date: 20170808
  Receipt Date: 20170928
  Transmission Date: 20171127
  Serious: Yes (Hospitalization, Other)
  Sender: FDA-Public Use
  Company Number: US-AMGEN-USASP2017117466

PATIENT
  Age: 67 Year
  Sex: Male
  Weight: 78.95 kg

DRUGS (1)
  1. PROLIA [Suspect]
     Active Substance: DENOSUMAB
     Indication: OSTEOPOROSIS
     Dosage: 60 MG, Q6MO
     Route: 030
     Dates: start: 201310, end: 201707

REACTIONS (1)
  - Pancreatitis relapsing [Recovering/Resolving]

NARRATIVE: CASE EVENT DATE: 20170725
